FAERS Safety Report 8740595 (Version 2)
Quarter: 2012Q4

REPORT INFORMATION
  Report Type: 
  Country: US (occurrence: US)
  Receive Date: 20120823
  Receipt Date: 20121114
  Transmission Date: 20130627
  Serious: No
  Sender: FDA-Public Use
  Company Number: US-ASTRAZENECA-2010SE22014

PATIENT
  Age: 61 Year
  Sex: Female

DRUGS (2)
  1. SYMBICORT PMDI [Suspect]
     Dosage: 160/4.5 MCG, 2 PUFFS BY MOUTH TWO TIMES PER DAY
     Route: 055
  2. SYMBICORT PMDI [Suspect]
     Dosage: THREE PUFFS TWICE DAILY
     Route: 055

REACTIONS (5)
  - Asthma [Unknown]
  - Dyspnoea [Unknown]
  - Intentional drug misuse [Unknown]
  - Drug dose omission [Unknown]
  - Off label use [Unknown]
